FAERS Safety Report 7414430-7 (Version None)
Quarter: 2011Q2

REPORT INFORMATION
  Report Type: 
  Country: None (occurrence: None)
  Receive Date: 20110414
  Receipt Date: 20110411
  Transmission Date: 20111010
  Serious: Yes (Other)
  Sender: FDA-Public Use
  Company Number: US-BAYER-2011-032010

PATIENT
  Sex: Female

DRUGS (3)
  1. OCELLA [Suspect]
  2. YAZ [Suspect]
  3. YASMIN [Suspect]

REACTIONS (3)
  - PAIN [None]
  - CHOLESTASIS [None]
  - INJURY [None]
